FAERS Safety Report 10726839 (Version 1)
Quarter: 2015Q1

REPORT INFORMATION
  Report Type: Report from Study
  Country: US (occurrence: US)
  Receive Date: 20150121
  Receipt Date: 20150121
  Transmission Date: 20150721
  Serious: Yes (Other)
  Sender: FDA-Public Use
  Company Number: US-SA-2014SA139096

PATIENT
  Age: 50 Year
  Sex: Male
  Weight: 51.7 kg

DRUGS (1)
  1. AUBAGIO [Suspect]
     Active Substance: TERIFLUNOMIDE
     Indication: MULTIPLE SCLEROSIS
     Route: 048
     Dates: start: 20140809

REACTIONS (5)
  - Limb discomfort [Unknown]
  - JC virus test positive [Unknown]
  - Gait disturbance [Unknown]
  - Balance disorder [Unknown]
  - Influenza [Unknown]

NARRATIVE: CASE EVENT DATE: 2014
